FAERS Safety Report 9155848 (Version 2)
Quarter: 2013Q1

REPORT INFORMATION
  Report Type: Spontaneous
  Country: US (occurrence: US)
  Receive Date: 20130311
  Receipt Date: 20130314
  Transmission Date: 20140127
  Serious: Yes (Other)
  Sender: FDA-Public Use
  Company Number: PHHY2013US021878

PATIENT
  Age: 16 Year
  Sex: Female

DRUGS (5)
  1. PREDNISONE [Suspect]
     Indication: FOCAL SEGMENTAL GLOMERULOSCLEROSIS
  2. SOLUMEDROL [Suspect]
     Indication: FOCAL SEGMENTAL GLOMERULOSCLEROSIS
     Route: 042
  3. CYCLOPHOSPHAMIDE [Concomitant]
  4. METHYLPHENIDATE [Concomitant]
     Indication: OPPOSITIONAL DEFIANT DISORDER
  5. RISPERIDONE [Concomitant]
     Indication: ATTENTION DEFICIT/HYPERACTIVITY DISORDER

REACTIONS (1)
  - Affective disorder [Unknown]
